FAERS Safety Report 24867923 (Version 1)
Quarter: 2025Q1

REPORT INFORMATION
  Report Type: Spontaneous
  Country: US (occurrence: US)
  Receive Date: 20250121
  Receipt Date: 20250121
  Transmission Date: 20250408
  Serious: No
  Sender: BAYER HEALTHCARE LLC
  Company Number: US-BAYER-2025A006390

PATIENT
  Sex: Female

DRUGS (1)
  1. ASTEPRO [Suspect]
     Active Substance: AZELASTINE HYDROCHLORIDE
     Indication: Ear disorder
     Route: 045
     Dates: start: 20250113, end: 20250113

REACTIONS (5)
  - Product prescribing issue [None]
  - Dysphonia [Unknown]
  - Sensation of foreign body [None]
  - Dysphagia [None]
  - Throat irritation [None]
